FAERS Safety Report 25661430 (Version 2)
Quarter: 2025Q4

REPORT INFORMATION
  Report Type: Spontaneous
  Country: AU (occurrence: AU)
  Receive Date: 20250808
  Receipt Date: 20251026
  Transmission Date: 20260117
  Serious: Yes (Hospitalization, Other)
  Sender: ELI LILLY AND COMPANY
  Company Number: AU-ELI_LILLY_AND_COMPANY-AU202506014454

PATIENT
  Age: 73 Year
  Sex: Female

DRUGS (1)
  1. MOUNJARO [Suspect]
     Active Substance: TIRZEPATIDE
     Indication: Product used for unknown indication
     Dosage: 5 MG, WEEKLY (1/W)
     Route: 065

REACTIONS (6)
  - Kidney infection [Unknown]
  - Sepsis [Unknown]
  - Accident [Unknown]
  - Accidental overdose [Unknown]
  - Weight decreased [Unknown]
  - Decreased appetite [Unknown]
